FAERS Safety Report 7872611-2 (Version None)
Quarter: 2011Q4

REPORT INFORMATION
  Report Type: 
  Country: None (occurrence: None)
  Receive Date: 20111030
  Receipt Date: 20110429
  Transmission Date: 20120403
  Serious: No
  Sender: FDA-Public Use
  Company Number: US-AMGEN-USASP2011022465

PATIENT
  Sex: Male

DRUGS (16)
  1. HYDROCHLOROTHIAZIDE [Concomitant]
     Dosage: 12.5 MG, UNK
  2. CYCLOPHOSPHAMIDE [Concomitant]
     Dosage: 5 MG, UNK
  3. MULTIVITAMIN                       /00097801/ [Concomitant]
  4. UREX                               /00024401/ [Concomitant]
     Dosage: 1 UNK, UNK
  5. ENBREL [Suspect]
     Indication: PRODUCT USED FOR UNKNOWN INDICATION
     Dosage: 50 MG, QWK
     Route: 058
  6. LEXAPRO [Concomitant]
     Dosage: 5 MG, UNK
  7. ZOLPIDEM [Concomitant]
     Dosage: 5 MG, UNK
  8. ULTRAM [Concomitant]
     Dosage: 100 MG, UNK
  9. LISINOPRIL [Concomitant]
     Dosage: 10 MG, UNK
  10. CALCIUM [Concomitant]
  11. ASPIRIN [Concomitant]
     Dosage: 81 MG, UNK
  12. FINASTERIDE [Concomitant]
     Dosage: 5 MG, UNK
  13. CLOBETASOL 0.05% [Concomitant]
  14. VITAMIN C                          /00008001/ [Concomitant]
     Dosage: 250 MG, UNK
  15. SIMVASTATIN [Concomitant]
     Dosage: 5 MG, UNK
  16. TRIAMCINOLON                       /00031901/ [Concomitant]
     Dosage: 0.025 %, UNK

REACTIONS (2)
  - HEADACHE [None]
  - RHINORRHOEA [None]
